FAERS Safety Report 5076186-5 (Version None)
Quarter: 2006Q3

REPORT INFORMATION
  Report Type: 
  Country: None (occurrence: None)
  Receive Date: 20060807
  Receipt Date: 20060728
  Transmission Date: 20061208
  Serious: Yes (Other)
  Sender: FDA-Public Use
  Company Number: 008195

PATIENT
  Age: 19 Year
  Sex: Female

DRUGS (2)
  1. CLARAVIS [Suspect]
     Indication: ACNE
     Dosage: 40 MG, TID, ORAL
     Route: 048
     Dates: start: 20060626, end: 20060722
  2. YASMIN [Concomitant]

REACTIONS (2)
  - IMPAIRED HEALING [None]
  - RECTAL PROLAPSE [None]
